FAERS Safety Report 4982519-8 (Version None)
Quarter: 2006Q1

REPORT INFORMATION
  Report Type: 
  Country: None (occurrence: None)
  Receive Date: 20060227
  Receipt Date: 20051012
  Transmission Date: 20060701
  Serious: Yes (Hospitalization, Disabling, Other)
  Sender: FDA-Public Use
  Company Number: WAES 0510USA06899

PATIENT
  Age: 75 Year
  Sex: Male
  Weight: 79.3795 kg

DRUGS (7)
  1. ZOCOR [Suspect]
     Indication: CARDIAC DISORDER
     Dosage: DAILY/PO
     Route: 048
     Dates: start: 19960313, end: 20051010
  2. ZOCOR [Suspect]
     Indication: HYPERCHOLESTEROLAEMIA
     Dosage: DAILY/PO
     Route: 048
     Dates: start: 19960313, end: 20051010
  3. COUMADIN [Concomitant]
  4. LASIX [Concomitant]
  5. PRIVINIL [Concomitant]
  6. DILTIAZEM MALATE [Concomitant]
  7. METOPROLOL [Concomitant]

REACTIONS (3)
  - DRUG ADMINISTRATION ERROR [None]
  - RENAL FAILURE ACUTE [None]
  - RHABDOMYOLYSIS [None]
